FAERS Safety Report 9387483 (Version 2)
Quarter: 2013Q3

REPORT INFORMATION
  Report Type: Spontaneous
  Country: US (occurrence: US)
  Receive Date: 20130708
  Receipt Date: 20130815
  Transmission Date: 20140515
  Serious: No
  Sender: FDA-Public Use
  Company Number: US-PFIZER INC-2013190887

PATIENT
  Age: 49 Year
  Sex: Female
  Weight: 83.9 kg

DRUGS (7)
  1. METOPROLOL [Concomitant]
     Dosage: 25 MG, UNK
  2. NEURONTIN [Suspect]
     Indication: NEUROPATHY PERIPHERAL
     Dosage: 600 MG, 3X/DAY
     Route: 048
     Dates: start: 201302, end: 201306
  3. RANITIDINE [Concomitant]
     Dosage: UNK
  4. PLAVIX [Concomitant]
     Dosage: UNK
  5. ALBUTEROL [Concomitant]
     Dosage: UNK
  6. ASPIRIN [Concomitant]
     Dosage: 325 MG, UNK
  7. LORAZEPAM [Concomitant]
     Dosage: 1 MG, UNK

REACTIONS (2)
  - Off label use [Unknown]
  - Drug ineffective for unapproved indication [Unknown]
